APPROVED DRUG PRODUCT: LEUCOVORIN CALCIUM
Active Ingredient: LEUCOVORIN CALCIUM
Strength: EQ 100MG BASE/10ML (EQ 10MG BASE/ML)
Dosage Form/Route: SOLUTION;INTRAMUSCULAR, INTRAVENOUS
Application: A207241 | Product #001
Applicant: FRESENIUS KABI USA LLC
Approved: Mar 14, 2018 | RLD: No | RS: Yes | Type: RX